FAERS Safety Report 9608202 (Version 2)
Quarter: 2013Q4

REPORT INFORMATION
  Report Type: Spontaneous
  Country: US (occurrence: US)
  Receive Date: 20131009
  Receipt Date: 20131009
  Transmission Date: 20140711
  Serious: Yes (Other)
  Sender: FDA-Public Use
  Company Number: US-NAPPMUNDI-USA-2012-0093448

PATIENT
  Age: 54 Year
  Sex: Female
  Weight: 86.62 kg

DRUGS (2)
  1. BUTRANS [Suspect]
     Indication: BACK PAIN
     Dosage: 5 MCG/HR, UNK
     Route: 062
     Dates: start: 20111102, end: 20120818
  2. BUTRANS [Suspect]
     Indication: NEURALGIA

REACTIONS (2)
  - Paraesthesia [Recovered/Resolved]
  - Pain in extremity [Recovered/Resolved]
